FAERS Safety Report 5146834-X (Version None)
Quarter: 2006Q4

REPORT INFORMATION
  Report Type: 
  Country: None (occurrence: None)
  Receive Date: 20061107
  Receipt Date: 20061107
  Transmission Date: 20070319
  Serious: Yes (Hospitalization)
  Sender: FDA-Public Use
  Company Number: None

PATIENT
  Sex: Female
  Weight: 57.7 kg

DRUGS (12)
  1. IRINOTECAN HCL [Suspect]
     Indication: GLIOBLASTOMA MULTIFORME
     Dosage: 125MG/M2    DAY 1, 8, 22, 29   IV
     Route: 042
     Dates: start: 20060817
  2. TEMODAR [Suspect]
     Indication: GLIOBLASTOMA MULTIFORME
     Dosage: 200MG/M2   DAYS 1-5    PO
     Route: 048
     Dates: start: 20060817, end: 20060821
  3. METOPROLOL [Concomitant]
  4. TIMOLOL MALEATE [Concomitant]
  5. DECADRON [Concomitant]
  6. ACTONEL [Concomitant]
  7. PRILOSEC [Concomitant]
  8. VALTREX [Concomitant]
  9. DIFLUCAN [Concomitant]
  10. CALCIUM [Concomitant]
  11. ASCORBIC ACID [Concomitant]
  12. VITAMIN D [Concomitant]

REACTIONS (18)
  - COLLAPSE OF LUNG [None]
  - CONFUSIONAL STATE [None]
  - HAEMATOTOXICITY [None]
  - HAEMOGLOBIN ABNORMAL [None]
  - HYPERGLYCAEMIA [None]
  - HYPOALBUMINAEMIA [None]
  - HYPOCALCAEMIA [None]
  - HYPOKALAEMIA [None]
  - HYPONATRAEMIA [None]
  - LEUKOPENIA [None]
  - NOSOCOMIAL INFECTION [None]
  - PLATELET COUNT DECREASED [None]
  - PNEUMONIA [None]
  - PNEUMOTHORAX [None]
  - PROCEDURAL COMPLICATION [None]
  - SOMNOLENCE [None]
  - THERAPY NON-RESPONDER [None]
  - THROMBOCYTOPENIA [None]
